FAERS Safety Report 12981722 (Version 1)
Quarter: 2016Q4

REPORT INFORMATION
  Report Type: Spontaneous
  Country: US (occurrence: US)
  Receive Date: 20161128
  Receipt Date: 20161128
  Transmission Date: 20170207
  Serious: No
  Sender: FDA-Public Use
  Company Number: None

PATIENT
  Age: 58 Year
  Sex: Female

DRUGS (1)
  1. ENBREL [Suspect]
     Active Substance: ETANERCEPT
     Indication: RHEUMATOID ARTHRITIS
     Dosage: 50MG ONCE A WEEK INJECTION SUBCUTANEOUS
     Route: 058
     Dates: start: 20160928, end: 20161101

REACTIONS (2)
  - Injection site rash [None]
  - Hypersensitivity [None]

NARRATIVE: CASE EVENT DATE: 20161101
